FAERS Safety Report 7084692-7 (Version None)
Quarter: 2010Q4

REPORT INFORMATION
  Report Type: 
  Country: None (occurrence: None)
  Receive Date: 20101104
  Receipt Date: 20100729
  Transmission Date: 20110411
  Serious: Yes (Death, Hospitalization)
  Sender: FDA-Public Use
  Company Number: US-AMGEN-QUU388623

PATIENT

DRUGS (3)
  1. NPLATE [Suspect]
     Indication: IDIOPATHIC THROMBOCYTOPENIC PURPURA
     Dosage: UNK UNK, UNK
     Dates: start: 20081224, end: 20081224
  2. NPLATE [Suspect]
     Dates: start: 20081224
  3. IMMU-G [Concomitant]
     Dosage: UNK UNK, UNK
     Dates: start: 20081212

REACTIONS (1)
  - LUNG NEOPLASM MALIGNANT [None]
